FAERS Safety Report 16010166 (Version 7)
Quarter: 2020Q1

REPORT INFORMATION
  Report Type: Spontaneous
  Country: JP (occurrence: JP)
  Receive Date: 20190225
  Receipt Date: 20200306
  Transmission Date: 20200409
  Serious: Yes (Hospitalization, Other)
  Sender: FDA-Public Use
  Company Number: JP-GLAXOSMITHKLINE-JP2019JPN032540

PATIENT
  Age: 66 Year
  Sex: Male
  Weight: 56 kg

DRUGS (9)
  1. FASENRA [Suspect]
     Active Substance: BENRALIZUMAB
     Indication: ASTHMA
     Dosage: 30 MG, UNK
     Route: 058
     Dates: start: 20180612
  2. THEOLONG [Concomitant]
     Active Substance: THEOPHYLLINE ANHYDROUS
     Indication: ASTHMA
     Dosage: 400 MG, 1D
     Dates: start: 20160311
  3. ALLELOCK [Concomitant]
     Active Substance: OLOPATADINE HYDROCHLORIDE
     Indication: RHINITIS ALLERGIC
     Dosage: 10 MG, 1D
     Dates: start: 20181002
  4. NEXIUM CAPSULE [Concomitant]
     Dosage: 20 MG, QD
     Dates: start: 20180313
  5. URIEF [Concomitant]
     Active Substance: SILODOSIN
     Dosage: 8 MG, 1D
     Dates: start: 20180313
  6. MEPOLIZUMAB [Suspect]
     Active Substance: MEPOLIZUMAB
     Indication: ASTHMA
     Dosage: 100 MG, UNK, EVERY FOUR WEEKS
     Route: 058
     Dates: start: 20160816, end: 20180515
  7. SYMBICORT [Concomitant]
     Active Substance: BUDESONIDE\FORMOTEROL FUMARATE DIHYDRATE
     Indication: ASTHMA
     Dosage: 4 DF, 1D
  8. MONTELUKAST SODIUM TABLET [Concomitant]
     Active Substance: MONTELUKAST SODIUM
     Indication: ASTHMA
     Dosage: 10 MG, 1D
  9. ANORO ELLIPTA [Concomitant]
     Active Substance: UMECLIDINIUM BROMIDE\VILANTEROL TRIFENATATE
     Indication: ASTHMA
     Dosage: 1 DF, 1D
     Dates: start: 20161108

REACTIONS (3)
  - Autoimmune pancreatitis [Not Recovered/Not Resolved]
  - Jaundice cholestatic [Recovering/Resolving]
  - Pancreatic neoplasm [Not Recovered/Not Resolved]

NARRATIVE: CASE EVENT DATE: 20190214
